FAERS Safety Report 25883996 (Version 1)
Quarter: 2025Q4

REPORT INFORMATION
  Report Type: Spontaneous
  Country: EU (occurrence: EU)
  Receive Date: 20251006
  Receipt Date: 20251006
  Transmission Date: 20260119
  Serious: Yes (Other)
  Sender: AUROBINDO
  Company Number: EU-ROCHE-10000389845

PATIENT
  Age: 79 Year
  Sex: Female

DRUGS (3)
  1. GEMCITABINE [Suspect]
     Active Substance: GEMCITABINE
     Indication: High-grade B-cell lymphoma
     Dosage: UNK
     Route: 065
  2. OXALIPLATIN [Suspect]
     Active Substance: OXALIPLATIN
     Indication: High-grade B-cell lymphoma
     Dosage: UNK
     Route: 065
  3. COLUMVI [Suspect]
     Active Substance: GLOFITAMAB-GXBM
     Indication: High-grade B-cell lymphoma
     Dosage: 2.5 MILLIGRAM
     Route: 065
     Dates: start: 20250625

REACTIONS (2)
  - Cytokine release syndrome [Recovered/Resolved]
  - Off label use [Unknown]
